FAERS Safety Report 6134971-2 (Version None)
Quarter: 2009Q1

REPORT INFORMATION
  Report Type: 
  Country: None (occurrence: None)
  Receive Date: 20090327
  Receipt Date: 20090316
  Transmission Date: 20090719
  Serious: Yes (Death, Other)
  Sender: FDA-Public Use
  Company Number: ES-JNJFOC-20090305188

PATIENT
  Sex: Male

DRUGS (8)
  1. REMICADE [Suspect]
     Route: 042
  2. REMICADE [Suspect]
     Indication: DRUG USE FOR UNKNOWN INDICATION
     Route: 042
  3. METHOTREXATE [Concomitant]
  4. NSAID [Concomitant]
  5. FOLIC ACID [Concomitant]
  6. BIPHOSPHONATES [Concomitant]
  7. INFLUENZA VACCINATION [Concomitant]
  8. PNEUMOCOCCUS VACCINE [Concomitant]

REACTIONS (1)
  - HAEMORRHAGE INTRACRANIAL [None]
